FAERS Safety Report 7804118-2 (Version None)
Quarter: 2011Q4

REPORT INFORMATION
  Report Type: 
  Country: None (occurrence: None)
  Receive Date: 20111010
  Receipt Date: 20111004
  Transmission Date: 20120403
  Serious: Yes (Death)
  Sender: FDA-Public Use
  Company Number: US-ASTELLAS-2011US004557

PATIENT
  Sex: Male
  Weight: 90 kg

DRUGS (8)
  1. ERLOTINIB HYDROCHLORIDE [Suspect]
     Dosage: 50 MG, UID/QD
     Route: 048
     Dates: start: 20110627
  2. ERLOTINIB HYDROCHLORIDE [Suspect]
     Indication: NON-SMALL CELL LUNG CANCER
     Dosage: 100 MG, UID/QD
     Route: 048
     Dates: start: 20110531
  3. PROCRIT [Concomitant]
     Dosage: 60 U, UNKNOWN/D
     Route: 065
     Dates: start: 20090101
  4. ERLOTINIB HYDROCHLORIDE [Suspect]
     Indication: SMALL CELL LUNG CANCER STAGE UNSPECIFIED
     Dosage: 25 MG, UID/QD
     Route: 048
     Dates: start: 20110620
  5. REVLIMID [Concomitant]
     Indication: HAEMOGLOBIN DECREASED
     Dosage: UNK
     Route: 065
     Dates: start: 20100701
  6. PROCRIT [Concomitant]
     Indication: HAEMOGLOBIN DECREASED
     Dosage: 40 U, UNK
     Route: 065
     Dates: start: 20080101
  7. ERLOTINIB HYDROCHLORIDE [Suspect]
     Dosage: 100 MG, UID/QD
     Route: 048
     Dates: end: 20110719
  8. ERLOTINIB HYDROCHLORIDE [Suspect]
     Dosage: 100 MG, QOD X4
     Route: 048
     Dates: start: 20110628

REACTIONS (9)
  - NON-SMALL CELL LUNG CANCER [None]
  - ABDOMINAL PAIN UPPER [None]
  - HAEMOPTYSIS [None]
  - NAUSEA [None]
  - METASTATIC NEOPLASM [None]
  - SMALL CELL LUNG CANCER STAGE UNSPECIFIED [None]
  - HEADACHE [None]
  - ECCHYMOSIS [None]
  - VOMITING [None]
